FAERS Safety Report 15112746 (Version 2)
Quarter: 2018Q4

REPORT INFORMATION
  Report Type: Spontaneous
  Country: JP (occurrence: JP)
  Receive Date: 20180705
  Receipt Date: 20181113
  Transmission Date: 20190204
  Serious: Yes (Hospitalization, Other)
  Sender: FDA-Public Use
  Company Number: JP-GILEAD-2018-0342874

PATIENT
  Age: 67 Year
  Sex: Male

DRUGS (2)
  1. VEMLIDY [Suspect]
     Active Substance: TENOFOVIR ALAFENAMIDE FUMARATE
     Indication: PRODUCT USED FOR UNKNOWN INDICATION
     Dosage: UNK UNKNOWN, UNK
     Route: 048
     Dates: start: 201804
  2. CISPLATIN. [Suspect]
     Active Substance: CISPLATIN
     Indication: CHEMOTHERAPY
     Dosage: UNK UNKNOWN, UNK
     Route: 065

REACTIONS (4)
  - Incorrect route of product administration [Not Recovered/Not Resolved]
  - Head and neck cancer [Not Recovered/Not Resolved]
  - Stomatitis [Unknown]
  - Dysphagia [Not Recovered/Not Resolved]
